FAERS Safety Report 18450606 (Version 1)
Quarter: 2020Q4

REPORT INFORMATION
  Report Type: Spontaneous
  Country: CN (occurrence: CN)
  Receive Date: 20201030
  Receipt Date: 20201030
  Transmission Date: 20210114
  Serious: Yes (Other)
  Sender: FDA-Public Use
  Company Number: CN-ASTRAZENECA-2020SF40213

PATIENT
  Age: 29951 Day
  Sex: Male

DRUGS (3)
  1. PULMICORT RESPULES [Suspect]
     Active Substance: BUDESONIDE
     Indication: ASPHYXIA
     Route: 055
     Dates: start: 20200928, end: 20200928
  2. PULMICORT RESPULES [Suspect]
     Active Substance: BUDESONIDE
     Indication: CHRONIC OBSTRUCTIVE PULMONARY DISEASE
     Route: 055
     Dates: start: 20200928, end: 20200928
  3. PULMICORT RESPULES [Suspect]
     Active Substance: BUDESONIDE
     Indication: COR PULMONALE
     Route: 055
     Dates: start: 20200928, end: 20200928

REACTIONS (1)
  - Asphyxia [Recovering/Resolving]

NARRATIVE: CASE EVENT DATE: 20200928
